FAERS Safety Report 6494325-6 (Version None)
Quarter: 2009Q4

REPORT INFORMATION
  Report Type: 
  Country: None (occurrence: None)
  Receive Date: 20091214
  Receipt Date: 20090209
  Transmission Date: 20100525
  Serious: Yes (Other)
  Sender: FDA-Public Use
  Company Number: US-BRISTOL-MYERS SQUIBB COMPANY-14498547

PATIENT
  Age: 42 Year
  Sex: Female
  Weight: 98 kg

DRUGS (8)
  1. ABILIFY [Suspect]
     Indication: DEPRESSION
     Dosage: 1 YEAR AGO DOSE DECREASED TO 10 MG DAILY
  2. LISINOPRIL [Concomitant]
  3. GLIPIZIDE [Concomitant]
  4. LANTUS [Concomitant]
  5. KLONOPIN [Concomitant]
  6. ZOLOFT [Concomitant]
  7. SYNTHROID [Concomitant]
  8. BENZTROPINE MESYLATE [Concomitant]

REACTIONS (1)
  - BLOOD GLUCOSE INCREASED [None]
